FAERS Safety Report 4996499-2 (Version None)
Quarter: 2006Q2

REPORT INFORMATION
  Report Type: 
  Country: None (occurrence: None)
  Receive Date: 20060505
  Receipt Date: 20060421
  Transmission Date: 20061013
  Serious: Yes (Death)
  Sender: FDA-Public Use
  Company Number: 2006SS000045

PATIENT
  Age: 31 Year
  Sex: Male

DRUGS (2)
  1. MYOBLOC [Suspect]
     Indication: TORTICOLLIS
     Dosage: 6000 + 20000 U; IM
     Route: 030
     Dates: start: 20060111, end: 20060111
  2. MYOBLOC [Suspect]
     Indication: TORTICOLLIS
     Dosage: 6000 + 20000 U; IM
     Route: 030
     Dates: start: 20060315, end: 20060315

REACTIONS (6)
  - ANOXIC ENCEPHALOPATHY [None]
  - ASPIRATION [None]
  - DRUG SCREEN POSITIVE [None]
  - PHARYNGOLARYNGEAL PAIN [None]
  - THERAPEUTIC RESPONSE DECREASED [None]
  - UPPER RESPIRATORY TRACT INFECTION [None]
